FAERS Safety Report 16128936 (Version 1)
Quarter: 2019Q1

REPORT INFORMATION
  Report Type: Report from Study
  Country: US (occurrence: US)
  Receive Date: 20190328
  Receipt Date: 20190328
  Transmission Date: 20190418
  Serious: Yes (Hospitalization, Other)
  Sender: FDA-Public Use
  Company Number: US-JNJFOC-20190217589

PATIENT
  Age: 80 Year
  Sex: Male

DRUGS (13)
  1. IMBRUVICA [Suspect]
     Active Substance: IBRUTINIB
     Indication: CHRONIC LYMPHOCYTIC LEUKAEMIA RECURRENT
     Dosage: 420 MG, QD
     Route: 048
     Dates: start: 20180411, end: 20190121
  2. MELOXICAM. [Concomitant]
     Active Substance: MELOXICAM
  3. IMIQUIMOD. [Concomitant]
     Active Substance: IMIQUIMOD
  4. PROTONIX [Concomitant]
     Active Substance: PANTOPRAZOLE SODIUM
  5. K-DUR [Concomitant]
     Active Substance: POTASSIUM CHLORIDE
  6. ASPIRIN. [Concomitant]
     Active Substance: ASPIRIN
     Route: 065
  7. SENOKOT [Concomitant]
     Active Substance: SENNOSIDES
  8. LISINOPRIL/HCTZ [Concomitant]
     Active Substance: HYDROCHLOROTHIAZIDE\LISINOPRIL
  9. TYLENOL [Concomitant]
     Active Substance: ACETAMINOPHEN
  10. METFORMIN [Concomitant]
     Active Substance: METFORMIN HYDROCHLORIDE
  11. SIMVASTATIN. [Concomitant]
     Active Substance: SIMVASTATIN
     Route: 065
  12. TRAMADOL. [Concomitant]
     Active Substance: TRAMADOL
  13. ZYLOPRIM [Concomitant]
     Active Substance: ALLOPURINOL

REACTIONS (4)
  - Escherichia sepsis [Recovering/Resolving]
  - Transaminases increased [Recovering/Resolving]
  - Respiratory syncytial virus bronchitis [Recovering/Resolving]
  - Cholelithiasis [Recovering/Resolving]

NARRATIVE: CASE EVENT DATE: 20190121
